FAERS Safety Report 24283773 (Version 3)
Quarter: 2024Q4

REPORT INFORMATION
  Report Type: Report from Study
  Country: CH (occurrence: CH)
  Receive Date: 20240905
  Receipt Date: 20241016
  Transmission Date: 20250114
  Serious: Yes (Hospitalization)
  Sender: ABBVIE
  Company Number: CH-ABBVIE-5733370

PATIENT
  Sex: Female

DRUGS (9)
  1. CARBIDOPA\LEVODOPA [Suspect]
     Active Substance: CARBIDOPA\LEVODOPA
     Indication: Parkinson^s disease
     Dosage: MD: 8.0 ML, CRD: 3.2 ML/H, ED: 1.5 ML, FREQUENCY ?TEXT: 16H THERAPY
     Route: 050
     Dates: start: 20240410, end: 20240604
  2. CARBIDOPA\LEVODOPA [Suspect]
     Active Substance: CARBIDOPA\LEVODOPA
     Dosage: MD: 5.0 ML, CRD: 2.9 ML/H, ED: 1.0 ML, FREQUENCY TEXT: 16H THERAPY
     Route: 050
     Dates: start: 20240405, end: 20240410
  3. CARBIDOPA\LEVODOPA [Suspect]
     Active Substance: CARBIDOPA\LEVODOPA
     Dosage: MD: 5.0 ML, CRD: 2.3 ML/H, ED: 1.0 ML, FREQUENCY TEXT: 16H THERAPY
     Route: 050
     Dates: start: 20240403, end: 20240405
  4. CARBIDOPA\LEVODOPA [Suspect]
     Active Substance: CARBIDOPA\LEVODOPA
     Dosage: MD: 8.0 ML, CRD: 3.5 ML/H, ED: 1.3 ML, FREQUENCY? TEXT: 16H THERAPY
     Route: 050
     Dates: start: 20240604, end: 20240806
  5. CARBIDOPA\LEVODOPA [Suspect]
     Active Substance: CARBIDOPA\LEVODOPA
     Dosage: MD: 9.0 ML, CRD: 3.7 ML/H, ED: 1.0 ML?FREQUENCY TEXT: 16H THERAPY
     Route: 050
     Dates: start: 20240806, end: 20240823
  6. CARBIDOPA\LEVODOPA [Suspect]
     Active Substance: CARBIDOPA\LEVODOPA
     Dosage: MD: 8.0 ML, CRD: 3.5 ML/H, ED: 1.3 ML?FREQUENCY TEXT: 16H THERAPY?END DATE: AUG 2024
     Route: 050
     Dates: start: 20240823
  7. CARBIDOPA\LEVODOPA [Suspect]
     Active Substance: CARBIDOPA\LEVODOPA
     Dosage: MD: 8.0 ML, CRD: 3.9 ML/H, ED: 1.3 ML?FREQUENCY TEXT: 16H THERAPY?LAST ADMIN DATE 2024
     Route: 050
     Dates: start: 20240830
  8. CARBIDOPA\LEVODOPA [Suspect]
     Active Substance: CARBIDOPA\LEVODOPA
     Dosage: MD: 4.0 ML, CRD: 3.5 ML/H, ED: 1.3 ML, CRN:1.0 ML/H?FREQUENCY TEXT: 16H THERAPY
     Route: 050
     Dates: start: 20240919
  9. CARBIDOPA\LEVODOPA [Suspect]
     Active Substance: CARBIDOPA\LEVODOPA
     Dosage: MD: 7.5 ML, CRD: 3.5 ML/H, ED: 1.3 ML?FREQUENCY TEXT: 16H THERAPY
     Route: 050
     Dates: start: 20240908, end: 20240919

REACTIONS (7)
  - Physical deconditioning [Not Recovered/Not Resolved]
  - Akinesia [Not Recovered/Not Resolved]
  - Dyskinesia [Not Recovered/Not Resolved]
  - Freezing phenomenon [Not Recovered/Not Resolved]
  - Product dispensing error [Unknown]
  - Gait disturbance [Not Recovered/Not Resolved]
  - On and off phenomenon [Not Recovered/Not Resolved]

NARRATIVE: CASE EVENT DATE: 20240101
